FAERS Safety Report 16167814 (Version 4)
Quarter: 2019Q4

REPORT INFORMATION
  Report Type: Report from Study
  Country: CN (occurrence: CN)
  Receive Date: 20190408
  Receipt Date: 20191226
  Transmission Date: 20200122
  Serious: Yes (Hospitalization)
  Sender: FDA-Public Use
  Company Number: CN-ROCHE-2246093

PATIENT
  Age: 59 Year
  Sex: Male
  Weight: 73 kg

DRUGS (14)
  1. DICLOFENAC SODIUM. [Concomitant]
     Active Substance: DICLOFENAC SODIUM
     Indication: RHEUMATOID ARTHRITIS
     Route: 048
     Dates: start: 201806
  2. MOXIFLOXACIN. [Concomitant]
     Active Substance: MOXIFLOXACIN
     Route: 065
     Dates: start: 20190111, end: 20190125
  3. TOCILIZUMAB. [Suspect]
     Active Substance: TOCILIZUMAB
     Indication: RHEUMATOID ARTHRITIS
     Dosage: DATE OF MOST RECENT DOSE OF TOCILIZUMAB PRIOR TO SAE ONSET 02/JAN/2019?162 MG GIVEN AS 0.9 MILLILITE
     Route: 058
     Dates: start: 20181218
  4. METFORMIN [Concomitant]
     Active Substance: METFORMIN HYDROCHLORIDE
     Route: 065
     Dates: start: 201806
  5. ISONIAZID. [Concomitant]
     Active Substance: ISONIAZID
     Route: 065
     Dates: start: 20181118, end: 20190212
  6. METHOTREXATE. [Suspect]
     Active Substance: METHOTREXATE
     Indication: RHEUMATOID ARTHRITIS
     Dosage: DATE OF MOST RECENT DOSE OF METHOTREXATE PRIOR TO AE ONSET 09/JAN/2019?STABLE DOSES AT 10 TO 25 MG O
     Route: 048
     Dates: start: 20181219
  7. CORBRIN [Concomitant]
     Active Substance: DIETARY SUPPLEMENT\OPHIOCORDYCEPS SINENSIS
     Route: 065
     Dates: start: 20190111, end: 20190125
  8. NIFEDIPINE. [Concomitant]
     Active Substance: NIFEDIPINE
     Route: 065
     Dates: start: 201503
  9. ETIMICIN SULFATE [Concomitant]
     Active Substance: ETIMICIN SULFATE
     Route: 065
     Dates: start: 20190113, end: 20190121
  10. CEFEPIME [Concomitant]
     Active Substance: CEFEPIME HYDROCHLORIDE
     Route: 065
     Dates: start: 20190111, end: 20190124
  11. LEFLUNOMIDE. [Concomitant]
     Active Substance: LEFLUNOMIDE
     Route: 065
     Dates: start: 20190213
  12. CLINDAMYCIN. [Concomitant]
     Active Substance: CLINDAMYCIN
     Route: 065
     Dates: start: 20190108, end: 20190110
  13. RIBAVIRIN. [Concomitant]
     Active Substance: RIBAVIRIN
     Route: 065
     Dates: start: 20190108, end: 20190110
  14. FOLIC ACID. [Concomitant]
     Active Substance: FOLIC ACID
     Route: 065
     Dates: start: 201703

REACTIONS (1)
  - Interstitial lung disease [Recovered/Resolved with Sequelae]

NARRATIVE: CASE EVENT DATE: 20190111
